FAERS Safety Report 22390407 (Version 1)
Quarter: 2023Q2

REPORT INFORMATION
  Report Type: Spontaneous
  Country: GB (occurrence: GB)
  Receive Date: 20230531
  Receipt Date: 20230531
  Transmission Date: 20230721
  Serious: Yes (Hospitalization)
  Sender: FDA-Public Use
  Company Number: GB-MYLANLABS-2023M1040965

PATIENT
  Age: 44 Year
  Sex: Female

DRUGS (2)
  1. OLANZAPINE [Suspect]
     Active Substance: OLANZAPINE
     Indication: Product used for unknown indication
     Dosage: UNK
     Route: 065
  2. CLOZARIL [Suspect]
     Active Substance: CLOZAPINE
     Indication: Schizophrenia
     Dosage: UNK,
     Route: 048
     Dates: start: 20090526

REACTIONS (3)
  - Lymphoma [Unknown]
  - General physical condition abnormal [Unknown]
  - Eosinophilia [Unknown]

NARRATIVE: CASE EVENT DATE: 20230412
